FAERS Safety Report 5838816-7 (Version None)
Quarter: 2008Q3

REPORT INFORMATION
  Report Type: 
  Country: None (occurrence: None)
  Receive Date: 20080808
  Receipt Date: 20080728
  Transmission Date: 20090109
  Serious: Yes (Hospitalization)
  Sender: FDA-Public Use
  Company Number: PL-ELI_LILLY_AND_COMPANY-PL200807005717

PATIENT
  Sex: Female

DRUGS (3)
  1. ZYPREXA [Suspect]
     Dosage: 10 MG, DAILY (1/D)
     Route: 048
     Dates: start: 20071219, end: 20071224
  2. LERIVON [Concomitant]
     Dosage: 30 MG, DAILY (1/D)
     Route: 065
     Dates: start: 20071220, end: 20071220
  3. ANAFRANIL [Concomitant]
     Dosage: 75 MG, UNKNOWN
     Route: 065
     Dates: end: 20071220

REACTIONS (1)
  - INAPPROPRIATE ANTIDIURETIC HORMONE SECRETION [None]
